FAERS Safety Report 12134274 (Version 6)
Quarter: 2016Q3

REPORT INFORMATION
  Report Type: Spontaneous
  Country: CA (occurrence: CA)
  Receive Date: 20160301
  Receipt Date: 20160818
  Transmission Date: 20161109
  Serious: Yes (Hospitalization, Other)
  Sender: FDA-Public Use
  Company Number: CA-GLAXOSMITHKLINE-CA2015GSK164339

PATIENT
  Age: 55 Year
  Sex: Female
  Weight: 38 kg

DRUGS (5)
  1. BENLYSTA [Suspect]
     Active Substance: BELIMUMAB
     Indication: SYSTEMIC LUPUS ERYTHEMATOSUS
     Dosage: 600 MG, UNK
     Route: 042
     Dates: start: 20150527
  2. BENLYSTA [Suspect]
     Active Substance: BELIMUMAB
     Dosage: 600 MG, UNK
     Route: 042
     Dates: end: 20160209
  3. BENLYSTA [Suspect]
     Active Substance: BELIMUMAB
     Dosage: 400 MG, UNK
     Route: 042
     Dates: start: 20160714
  4. BENLYSTA [Suspect]
     Active Substance: BELIMUMAB
     Dosage: 600 MG, UNK
     Route: 042
     Dates: start: 20150527
  5. PREDNISONE. [Suspect]
     Active Substance: PREDNISONE
     Indication: PRODUCT USED FOR UNKNOWN INDICATION
     Dosage: UNK

REACTIONS (25)
  - Pneumonia [Recovered/Resolved]
  - Pain [Unknown]
  - Fall [Unknown]
  - Feeding disorder [Unknown]
  - Weight decreased [Unknown]
  - Back pain [Not Recovered/Not Resolved]
  - Loss of consciousness [Unknown]
  - Systemic lupus erythematosus [Unknown]
  - Rib fracture [Unknown]
  - Neck pain [Not Recovered/Not Resolved]
  - Scab [Not Recovered/Not Resolved]
  - Multiple fractures [Unknown]
  - Osteoporosis [Unknown]
  - Erythema [Not Recovered/Not Resolved]
  - Dyspnoea [Unknown]
  - Spinal compression fracture [Unknown]
  - Hip fracture [Unknown]
  - Fracture [Unknown]
  - Memory impairment [Unknown]
  - Blister [Not Recovered/Not Resolved]
  - Thermal burn [Not Recovered/Not Resolved]
  - Fractured coccyx [Unknown]
  - Palliative care [Not Recovered/Not Resolved]
  - Malaise [Unknown]
  - Urinary tract infection [Unknown]

NARRATIVE: CASE EVENT DATE: 201512
